FAERS Safety Report 5626846-X (Version None)
Quarter: 2008Q1

REPORT INFORMATION
  Report Type: 
  Country: None (occurrence: None)
  Receive Date: 20080212
  Receipt Date: 20080131
  Transmission Date: 20080703
  Serious: Yes (Other)
  Sender: FDA-Public Use
  Company Number: 2008S1001681

PATIENT
  Age: 60 Year
  Sex: Female

DRUGS (5)
  1. METFORMIN HCL [Suspect]
     Indication: TYPE 2 DIABETES MELLITUS
     Dosage: 500 MG;TABLET;ORAL;TWICE A DAY
     Route: 048
     Dates: start: 20010101
  2. DIAMICRON (GLICLAZIDE) [Concomitant]
  3. NOVONORM (REPAGLINIDE) [Concomitant]
  4. LEVOTHYROXINE SODIUM [Concomitant]
  5. INDOMETHACIN [Concomitant]

REACTIONS (4)
  - BLOOD GLUCOSE INCREASED [None]
  - PERNICIOUS ANAEMIA [None]
  - TREATMENT NONCOMPLIANCE [None]
  - VITAMIN B12 DEFICIENCY [None]
